FAERS Safety Report 9626650 (Version 2)
Quarter: 2013Q4

REPORT INFORMATION
  Report Type: Spontaneous
  Country: US (occurrence: US)
  Receive Date: 20131016
  Receipt Date: 20131029
  Transmission Date: 20140711
  Serious: No
  Sender: FDA-Public Use
  Company Number: US-PFIZER INC-2013294285

PATIENT
  Age: 82 Year
  Sex: Female

DRUGS (1)
  1. XELJANZ [Suspect]
     Indication: RHEUMATOID ARTHRITIS
     Dosage: 6 DF, 2X/DAY (TWICE DAILY)
     Route: 048
     Dates: start: 20130911

REACTIONS (1)
  - Blood cholesterol increased [Not Recovered/Not Resolved]
